FAERS Safety Report 4811573-9 (Version None)
Quarter: 2005Q4

REPORT INFORMATION
  Report Type: 
  Country: None (occurrence: None)
  Receive Date: 20051027
  Receipt Date: 20051019
  Transmission Date: 20060501
  Serious: Yes (Other)
  Sender: FDA-Public Use
  Company Number: 200518319US

PATIENT
  Sex: Female

DRUGS (4)
  1. LANTUS [Suspect]
     Indication: DIABETES MELLITUS NON-INSULIN-DEPENDENT
     Dosage: DOSE UNIT: UNITS
     Route: 051
  2. OPTICLIK (INSULIN INJECTION PEN) [Suspect]
     Indication: DIABETES MELLITUS NON-INSULIN-DEPENDENT
     Route: 051
  3. REGULAR INSULIN [Concomitant]
     Dosage: DOSE: UNKNOWN
  4. UNKNOWN DRUG [Concomitant]

REACTIONS (5)
  - DIZZINESS [None]
  - DYSPNOEA [None]
  - HYPERGLYCAEMIA [None]
  - MALAISE [None]
  - MUSCLE SPASMS [None]
